FAERS Safety Report 8205437-0 (Version None)
Quarter: 2012Q1

REPORT INFORMATION
  Report Type: 
  Country: None (occurrence: None)
  Receive Date: 20120313
  Receipt Date: 20120307
  Transmission Date: 20120608
  Serious: Yes (Hospitalization, Other)
  Sender: FDA-Public Use
  Company Number: US-ABBOTT-12P-163-0912376-00

PATIENT
  Sex: Male
  Weight: 86.26 kg

DRUGS (8)
  1. PLAQUENIL [Concomitant]
     Indication: RHEUMATOID ARTHRITIS
  2. FLOMAX [Concomitant]
     Indication: BENIGN PROSTATIC HYPERPLASIA
  3. HUMIRA [Suspect]
     Indication: RHEUMATOID ARTHRITIS
     Route: 058
     Dates: start: 20110101, end: 20120120
  4. CRESTOR [Concomitant]
     Indication: BLOOD CHOLESTEROL INCREASED
  5. AMIODARONE HCL [Concomitant]
     Indication: SUPRAVENTRICULAR TACHYCARDIA
  6. TOPROL-XL [Concomitant]
     Indication: HYPERTENSION
  7. METHYLPREDNISOLONE ACETATE [Concomitant]
     Indication: RHEUMATOID ARTHRITIS
  8. FOSAMAX [Concomitant]
     Indication: OSTEOPENIA

REACTIONS (8)
  - PYREXIA [None]
  - FATIGUE [None]
  - RENAL CANCER [None]
  - VOMITING [None]
  - FULL BLOOD COUNT DECREASED [None]
  - DIARRHOEA [None]
  - SPINAL FRACTURE [None]
  - PNEUMONIA [None]
